FAERS Safety Report 23832528 (Version 1)
Quarter: 2024Q2

REPORT INFORMATION
  Report Type: Spontaneous
  Country: US (occurrence: None)
  Receive Date: 20240507
  Receipt Date: 20240507
  Transmission Date: 20240716
  Serious: No
  Sender: FDA-Public Use
  Company Number: None

PATIENT
  Age: 73 Year
  Sex: Male

DRUGS (1)
  1. RIVAROXABAN [Suspect]
     Active Substance: RIVAROXABAN
     Dosage: FREQUENCY : DAILY;?
     Route: 048
     Dates: start: 20170112

REACTIONS (4)
  - Blood loss anaemia [None]
  - Haematuria [None]
  - Therapy cessation [None]
  - Acute kidney injury [None]

NARRATIVE: CASE EVENT DATE: 20240411
